FAERS Safety Report 4562663-X (Version None)
Quarter: 2005Q1

REPORT INFORMATION
  Report Type: 
  Country: None (occurrence: None)
  Receive Date: 20050124
  Receipt Date: 20050111
  Transmission Date: 20050727
  Serious: Yes (Death, Other)
  Sender: FDA-Public Use
  Company Number: 2004096042

PATIENT
  Age: 51 Year
  Sex: Male

DRUGS (5)
  1. VFEND [Suspect]
     Indication: ASPERGILLOSIS
     Dosage: INTRAVENOUS
     Route: 042
  2. TEMAZEPAM [Suspect]
     Indication: ILL-DEFINED DISORDER
     Dosage: 10 MG (1 IN 1 D), UNKNOWN
     Route: 065
  3. DICLOFENAC (DICLOFENAC) [Suspect]
     Indication: ILL-DEFINED DISORDER
     Dosage: 150 MG (50 MG, 3 IN 1 D), UNKNOWN
     Route: 065
  4. CODEINE PHOSPHATE AND ACETAMINOPHEN [Suspect]
     Indication: ILL-DEFINED DISORDER
     Dosage: UNK (PRN), ORAL
     Route: 048
  5. DOTHIEPIN HYDROCHLORIDE [Suspect]
     Indication: ILL-DEFINED DISORDER
     Dosage: 100 MG (100 MG, 1 IN 1 D), UNKNOWN
     Route: 065

REACTIONS (14)
  - ACUTE RESPIRATORY DISTRESS SYNDROME [None]
  - BLOOD UREA INCREASED [None]
  - CONDITION AGGRAVATED [None]
  - CONFUSIONAL STATE [None]
  - COUGH [None]
  - DRUG LEVEL INCREASED [None]
  - FEELING DRUNK [None]
  - HEPATIC CIRRHOSIS [None]
  - HYPOGLYCAEMIA [None]
  - INFUSION RELATED REACTION [None]
  - LYMPHOPENIA [None]
  - PERITONEAL HAEMORRHAGE [None]
  - PYREXIA [None]
  - RESPIRATORY FAILURE [None]
